FAERS Safety Report 5027731-7 (Version None)
Quarter: 2006Q2

REPORT INFORMATION
  Report Type: 
  Country: None (occurrence: None)
  Receive Date: 20060428
  Receipt Date: 20060302
  Transmission Date: 20061013
  Serious: No
  Sender: FDA-Public Use
  Company Number: COT_0452_2006

PATIENT
  Age: 29 Year
  Sex: Female
  Weight: 103.8737 kg

DRUGS (7)
  1. VENTAVIS [Suspect]
     Indication: PULMONARY HYPERTENSION
     Dosage: 5 MCG 6XD IH
     Dates: start: 20060228, end: 20060302
  2. VENTAVIS [Suspect]
     Indication: PULMONARY HYPERTENSION
     Dosage: 2.5 MCG 6XD IH
     Dates: start: 20060303, end: 20060305
  3. TRACLEER [Concomitant]
  4. LASIX [Concomitant]
  5. VALTREX [Concomitant]
  6. PREVACID [Concomitant]
  7. ALDACTONE [Concomitant]

REACTIONS (2)
  - COUGH [None]
  - RESPIRATORY TRACT IRRITATION [None]
